FAERS Safety Report 6386631-0 (Version None)
Quarter: 2009Q4

REPORT INFORMATION
  Report Type: 
  Country: None (occurrence: None)
  Receive Date: 20091002
  Receipt Date: 20090918
  Transmission Date: 20100525
  Serious: Yes (Other)
  Sender: FDA-Public Use
  Company Number: US-ELI_LILLY_AND_COMPANY-US200907002510

PATIENT
  Sex: Female

DRUGS (3)
  1. FORTEO [Suspect]
     Dosage: UNK, UNK
     Dates: start: 20090101
  2. FORTEO [Suspect]
     Dosage: UNK, UNK
     Dates: start: 20090101, end: 20090101
  3. FORTEO [Suspect]
     Dates: start: 20090101

REACTIONS (17)
  - BLISTER [None]
  - BRONCHITIS [None]
  - BURNING SENSATION [None]
  - CONTUSION [None]
  - MALAISE [None]
  - NAUSEA [None]
  - NEUROPATHY PERIPHERAL [None]
  - PAIN OF SKIN [None]
  - PRURITUS [None]
  - PYREXIA [None]
  - RESPIRATORY TRACT INFECTION VIRAL [None]
  - RHEUMATOID ARTHRITIS [None]
  - ROAD TRAFFIC ACCIDENT [None]
  - SKIN EXFOLIATION [None]
  - STREPTOCOCCAL INFECTION [None]
  - SURGERY [None]
  - WHEEZING [None]
